FAERS Safety Report 9882596 (Version 2)
Quarter: 2014Q2

REPORT INFORMATION
  Report Type: Spontaneous
  Country: US (occurrence: US)
  Receive Date: 20140207
  Receipt Date: 20140616
  Transmission Date: 20141212
  Serious: No
  Sender: FDA-Public Use
  Company Number: US-009507513-1402USA003467

PATIENT
  Sex: Female
  Weight: 88.44 kg

DRUGS (1)
  1. NUVARING [Suspect]
     Dosage: UNK
     Route: 067
     Dates: end: 20120724

REACTIONS (3)
  - Deep vein thrombosis [Unknown]
  - Patellofemoral pain syndrome [Unknown]
  - Exposure during pregnancy [Recovered/Resolved]
